FAERS Safety Report 4883368-1 (Version None)
Quarter: 2006Q1

REPORT INFORMATION
  Report Type: 
  Country: None (occurrence: None)
  Receive Date: 20060118
  Receipt Date: 20060105
  Transmission Date: 20060701
  Serious: Yes (Other)
  Sender: FDA-Public Use
  Company Number: 2006SE00159

PATIENT
  Age: 21 Year
  Sex: Male

DRUGS (2)
  1. SEROQUEL [Suspect]
     Indication: SCHIZOPHRENIA
     Route: 048
  2. SEROXAT [Interacting]
     Indication: SCHIZOPHRENIA
     Route: 048

REACTIONS (2)
  - DRUG INTERACTION [None]
  - PANCYTOPENIA [None]
